FAERS Safety Report 13972969 (Version 1)
Quarter: 2017Q3

REPORT INFORMATION
  Report Type: Report from Study
  Country: ES (occurrence: ES)
  Receive Date: 20170914
  Receipt Date: 20170914
  Transmission Date: 20171128
  Serious: Yes (Hospitalization)
  Sender: FDA-Public Use
  Company Number: ES-PFIZER INC-2017394108

PATIENT
  Age: 40 Year
  Sex: Male

DRUGS (4)
  1. TOPIRAMATO [Interacting]
     Active Substance: TOPIRAMATE
     Indication: SCHIZOPHRENIA
     Dosage: UNK
     Route: 048
     Dates: start: 201508
  2. DEPRAX /00447702/ [Interacting]
     Active Substance: TRAZODONE HYDROCHLORIDE
     Indication: SCHIZOPHRENIA
     Dosage: UNK
     Route: 048
     Dates: start: 2012
  3. DIAZEPAM. [Interacting]
     Active Substance: DIAZEPAM
     Indication: GAMBLING DISORDER
     Dosage: UNK
     Route: 048
     Dates: start: 20150107, end: 20151019
  4. ZELDOX [Suspect]
     Active Substance: ZIPRASIDONE
     Indication: SCHIZOPHRENIA
     Dosage: UNK
     Route: 048
     Dates: start: 2012

REACTIONS (2)
  - Depressed level of consciousness [Recovered/Resolved]
  - Drug interaction [Recovered/Resolved]

NARRATIVE: CASE EVENT DATE: 201508
